FAERS Safety Report 23099950 (Version 1)
Quarter: 2023Q4

REPORT INFORMATION
  Report Type: Spontaneous
  Country: GR (occurrence: GR)
  Receive Date: 20231024
  Receipt Date: 20231024
  Transmission Date: 20240110
  Serious: Yes (Other)
  Sender: FDA-Public Use
  Company Number: GR-002147023-PHHY2018GR037200

PATIENT
  Age: 71 Year
  Sex: Male

DRUGS (5)
  1. TOBRAMYCIN [Suspect]
     Active Substance: TOBRAMYCIN
     Indication: Cataract operation
     Dosage: UNK
     Route: 065
  2. TOBRAMYCIN [Suspect]
     Active Substance: TOBRAMYCIN
     Indication: Intraocular lens implant
  3. LATANOPROST [Suspect]
     Active Substance: LATANOPROST
     Indication: Product used for unknown indication
     Dosage: UNK, Q4H (SIX TIMES DAILY)
     Route: 065
  4. DEXAMETHASONE [Suspect]
     Active Substance: DEXAMETHASONE
     Indication: Cataract operation
     Dosage: UNK
     Route: 065
  5. DEXAMETHASONE [Suspect]
     Active Substance: DEXAMETHASONE
     Indication: Intraocular lens implant

REACTIONS (3)
  - Cystoid macular oedema [Recovered/Resolved]
  - Wrong product administered [Recovered/Resolved]
  - Accidental overdose [Recovered/Resolved]
